FAERS Safety Report 8117013-9 (Version None)
Quarter: 2012Q1

REPORT INFORMATION
  Report Type: 
  Country: None (occurrence: None)
  Receive Date: 20120206
  Receipt Date: 20120130
  Transmission Date: 20120608
  Serious: Yes (Hospitalization)
  Sender: FDA-Public Use
  Company Number: US-US-EMD SERONO, INC.-7099213

PATIENT
  Sex: Female
  Weight: 54 kg

DRUGS (3)
  1. LOESTRIN 1.5/30 [Concomitant]
     Indication: CONTRACEPTION
  2. REBIF [Suspect]
     Dates: start: 20111201
  3. REBIF [Suspect]
     Indication: MULTIPLE SCLEROSIS
     Dates: start: 20111001, end: 20111121

REACTIONS (2)
  - GASTROOESOPHAGEAL REFLUX DISEASE [None]
  - DYSPNOEA [None]
